FAERS Safety Report 18045514 (Version 4)
Quarter: 2021Q1

REPORT INFORMATION
  Report Type: Spontaneous
  Country: SE (occurrence: SE)
  Receive Date: 20200720
  Receipt Date: 20210115
  Transmission Date: 20210419
  Serious: Yes (Death, Hospitalization, Other)
  Sender: FDA-Public Use
  Company Number: SE-BAYER-2020-140968

PATIENT
  Age: 83 Year
  Sex: Male

DRUGS (3)
  1. XOFIGO [Suspect]
     Active Substance: RADIUM RA-223 DICHLORIDE
     Indication: PROSTATE CANCER METASTATIC
     Dosage: UNK
     Dates: start: 20200522, end: 20200522
  2. XOFIGO [Suspect]
     Active Substance: RADIUM RA-223 DICHLORIDE
     Indication: PROSTATE CANCER METASTATIC
     Dosage: UNK
     Dates: start: 20200618, end: 20200618
  3. ZOMETA [Concomitant]
     Active Substance: ZOLEDRONIC ACID
     Indication: PROSTATE CANCER METASTATIC
     Dosage: UNK
     Dates: start: 20200522

REACTIONS (14)
  - Prostate cancer metastatic [None]
  - Thrombocytopenia [None]
  - Anaemia [None]
  - Pancytopenia [Fatal]
  - Musculoskeletal stiffness [None]
  - Pulmonary embolism [None]
  - Prostate cancer metastatic [Fatal]
  - Metastases to spine [None]
  - General physical health deterioration [Not Recovered/Not Resolved]
  - Metastases to bone [None]
  - Metastases to liver [None]
  - Spinal pain [Recovered/Resolved]
  - Bone marrow failure [Fatal]
  - Muscular weakness [Not Recovered/Not Resolved]

NARRATIVE: CASE EVENT DATE: 20200624
